FAERS Safety Report 23845922 (Version 1)
Quarter: 2024Q2

REPORT INFORMATION
  Report Type: Spontaneous
  Country: US (occurrence: US)
  Receive Date: 20240512
  Receipt Date: 20240512
  Transmission Date: 20240715
  Serious: No
  Sender: FDA-Public Use
  Company Number: US-CIPLA LTD.-2024US00767

PATIENT

DRUGS (9)
  1. ALBUTEROL [Suspect]
     Active Substance: ALBUTEROL
     Indication: Asthma
     Dosage: 90 MCG (1 PUFF), PRN (AS NEEDED)
     Dates: start: 20240111
  2. ALBUTEROL [Suspect]
     Active Substance: ALBUTEROL
     Dosage: MULTIPLE DOSES AT ONCE
     Dates: start: 20240114
  3. ALBUTEROL [Suspect]
     Active Substance: ALBUTEROL
     Dosage: UNK
     Route: 065
  4. ADVAIR HFA [Concomitant]
     Active Substance: FLUTICASONE PROPIONATE\SALMETEROL XINAFOATE
     Indication: Asthma
     Dosage: TWO PUFFS / TWICE A DAY (BID)
     Route: 065
  5. PANTOPRAZOLE [Concomitant]
     Active Substance: PANTOPRAZOLE
     Indication: Gastrooesophageal reflux disease
     Dosage: 1 DOSAGE FORM (1 TABLET), BID (TWICE A DAY)
     Route: 065
  6. ALBUTEROL SULFATE [Concomitant]
     Active Substance: ALBUTEROL SULFATE
     Indication: Asthma
     Dosage: UNK, PRN (AS NEEDED)
     Route: 065
  7. CHLORTHALIDONE [Concomitant]
     Active Substance: CHLORTHALIDONE
     Indication: Blood pressure management
     Dosage: 1 DOSAGE FORM (1 TABLET), QD (ONCE A DAY)
     Route: 065
  8. CITALOPRAM [Concomitant]
     Active Substance: CITALOPRAM\CITALOPRAM HYDROBROMIDE
     Indication: Anxiety
     Dosage: 1 DOSAGE FORM (1 TABLET), QD (ONCE A DAY)
     Route: 065
  9. GLICLAZIDE [Concomitant]
     Active Substance: GLICLAZIDE
     Indication: Hypersensitivity
     Dosage: 1 DOSAGE FORM (1 TABLET), QD (ONCE A DAY)
     Route: 065

REACTIONS (4)
  - Incorrect dose administered [Unknown]
  - Drug ineffective [Unknown]
  - Device delivery system issue [Unknown]
  - Product cleaning inadequate [Unknown]

NARRATIVE: CASE EVENT DATE: 20240114
